FAERS Safety Report 11114389 (Version 6)
Quarter: 2016Q4

REPORT INFORMATION
  Report Type: Spontaneous
  Country: DE (occurrence: DE)
  Receive Date: 20150514
  Receipt Date: 20161231
  Transmission Date: 20170206
  Serious: Yes (Hospitalization)
  Sender: FDA-Public Use
  Company Number: DE-AMGEN-DEUNI2015044952

PATIENT
  Age: 15 Year
  Sex: Female
  Weight: 32 kg

DRUGS (10)
  1. ALDACTONE [Concomitant]
     Active Substance: SPIRONOLACTONE
     Dosage: 25 MG, DAILY
     Dates: start: 201206
  2. MARCUMAR [Concomitant]
     Active Substance: PHENPROCOUMON
     Indication: CARDIAC FAILURE
     Dosage: UNK
     Route: 048
     Dates: start: 19990507
  3. ENBREL [Suspect]
     Active Substance: ETANERCEPT
     Indication: JUVENILE IDIOPATHIC ARTHRITIS
     Dosage: 25 MG, EVERY 6 DAYS
     Route: 065
     Dates: start: 20120628, end: 20150513
  4. MARCUMAR [Concomitant]
     Active Substance: PHENPROCOUMON
     Dosage: UNK, 1X/DAY
     Dates: start: 201206
  5. LASIX [Concomitant]
     Active Substance: FUROSEMIDE
     Indication: CARDIAC FAILURE
     Dosage: 25 MG, DAILY
     Route: 048
     Dates: start: 19990507
  6. LANITOP [Concomitant]
     Active Substance: METILDIGOXIN
     Indication: CARDIAC FAILURE
     Dosage: UNK
     Route: 048
     Dates: start: 19990507
  7. LASIX [Concomitant]
     Active Substance: FUROSEMIDE
     Dosage: 7 MG, 2X/DAY
     Dates: start: 201206
  8. ALDACTONE [Concomitant]
     Active Substance: SPIRONOLACTONE
     Indication: CARDIAC FAILURE
     Dosage: UNK
     Route: 048
     Dates: start: 19990507
  9. METHOTREXATE SODIUM. [Suspect]
     Active Substance: METHOTREXATE SODIUM
     Indication: JUVENILE IDIOPATHIC ARTHRITIS
     Dosage: 7.5 MG, WEEKLY
     Route: 065
     Dates: start: 20121114, end: 20150513
  10. LANITOP [Concomitant]
     Active Substance: METILDIGOXIN
     Dosage: 4 GTT, 2X/DAY
     Dates: start: 201206

REACTIONS (2)
  - Febrile infection [Recovered/Resolved]
  - Lymphoproliferative disorder [Recovered/Resolved]

NARRATIVE: CASE EVENT DATE: 20150115
